FAERS Safety Report 9293411 (Version 2)
Quarter: 2013Q3

REPORT INFORMATION
  Report Type: Spontaneous
  Country: DE (occurrence: DE)
  Receive Date: 20130517
  Receipt Date: 20130719
  Transmission Date: 20140515
  Serious: Yes (Hospitalization, Other)
  Sender: FDA-Public Use
  Company Number: DE-AMGEN-DEUSP2013010613

PATIENT
  Age: 56 Year
  Sex: Male
  Weight: 52.3 kg

DRUGS (12)
  1. OMEPRAZOL                          /00661201/ [Concomitant]
     Dosage: UNK
  2. LAMOTRIGINE [Concomitant]
     Dosage: UNK
  3. RAMIPRIL [Concomitant]
     Dosage: UNK
  4. TORASEMIDE [Concomitant]
     Dosage: UNK
  5. PREDNISOLON                        /00016201/ [Concomitant]
     Dosage: UNK
  6. ENBREL [Suspect]
     Indication: PSORIATIC ARTHROPATHY
     Dosage: 25 MG, WEEKLY
     Route: 065
     Dates: start: 20110718, end: 201201
  7. ENBREL [Suspect]
     Dosage: 25 MG, QWK
     Route: 065
     Dates: start: 201205, end: 201210
  8. MARCUMAR [Suspect]
     Dosage: UNK
  9. TOCILIZUMAB [Suspect]
     Dosage: UNK
     Dates: start: 201210
  10. INFLIXIMAB [Suspect]
     Dosage: UNK
     Dates: start: 201210, end: 201210
  11. MTX                                /00113802/ [Concomitant]
     Dosage: UNK
  12. FOLIC ACID [Concomitant]
     Dosage: UNK

REACTIONS (5)
  - Drug effect decreased [Unknown]
  - Liver function test abnormal [Unknown]
  - Psoriatic arthropathy [Unknown]
  - Laboratory test abnormal [Not Recovered/Not Resolved]
  - Epistaxis [Not Recovered/Not Resolved]
